FAERS Safety Report 7041303-4 (Version None)
Quarter: 2010Q3

REPORT INFORMATION
  Report Type: 
  Country: None (occurrence: None)
  Receive Date: 20100929
  Receipt Date: 20100821
  Transmission Date: 20110219
  Serious: No
  Sender: FDA-Public Use
  Company Number: US-WYE-H17037910

PATIENT
  Age: 54 Year
  Sex: Female
  Weight: 72.64 kg

DRUGS (3)
  1. PRISTIQ [Suspect]
     Indication: DEPRESSION
     Dosage: 100 MG 1X PER 1 DAY, ORAL
     Route: 048
     Dates: start: 20091201
  2. LORAZEPAM [Concomitant]
  3. ESTRADIOL [Concomitant]

REACTIONS (1)
  - ERUCTATION [None]
